FAERS Safety Report 25380674 (Version 1)
Quarter: 2025Q2

REPORT INFORMATION
  Report Type: Spontaneous
  Country: US (occurrence: None)
  Receive Date: 20250530
  Receipt Date: 20250530
  Transmission Date: 20250717
  Serious: Yes (Hospitalization, Disabling)
  Sender: FDA-CTU
  Company Number: None

PATIENT
  Age: 32 Year
  Sex: Female

DRUGS (2)
  1. LEXAPRO [Suspect]
     Active Substance: ESCITALOPRAM OXALATE
  2. PROZAC [Suspect]
     Active Substance: FLUOXETINE HYDROCHLORIDE

REACTIONS (13)
  - Suicidal ideation [None]
  - Vision blurred [None]
  - Dizziness [None]
  - Syncope [None]
  - Confusional state [None]
  - Insomnia [None]
  - Agitation [None]
  - Palpitations [None]
  - Nausea [None]
  - Diarrhoea [None]
  - Tremor [None]
  - Seizure [None]
  - Drug withdrawal syndrome [None]
